FAERS Safety Report 23339152 (Version 1)
Quarter: 2023Q4

REPORT INFORMATION
  Report Type: Spontaneous
  Country: US (occurrence: US)
  Receive Date: 20231226
  Receipt Date: 20231226
  Transmission Date: 20240109
  Serious: No
  Sender: FDA-Public Use
  Company Number: US-AMGEN-USASP2023230173

PATIENT
  Age: 27 Year
  Sex: Female

DRUGS (8)
  1. OTEZLA [Suspect]
     Active Substance: APREMILAST
     Indication: Psoriasis
     Dosage: 10 MILLIGRAM, QD AT DAY 1
     Route: 048
     Dates: start: 2023
  2. OTEZLA [Suspect]
     Active Substance: APREMILAST
     Dosage: 10 MILLIGRAM, BID AT DAY 2
     Route: 048
     Dates: start: 2023
  3. OTEZLA [Suspect]
     Active Substance: APREMILAST
     Dosage: 10 MG IN THE MORNING AND 20 MG IN THE EVENING AT DAY 3
     Route: 048
     Dates: start: 2023
  4. OTEZLA [Suspect]
     Active Substance: APREMILAST
     Dosage: 20 MILLIGRAM, BID AT DAY 4
     Route: 048
     Dates: start: 2023
  5. OTEZLA [Suspect]
     Active Substance: APREMILAST
     Dosage: 20 MG IN MORNING AND 30 MG IN EVENING AT DAY 5
     Route: 048
     Dates: start: 2023
  6. OTEZLA [Suspect]
     Active Substance: APREMILAST
     Dosage: 30 MILLIGRAM, BID
     Route: 048
     Dates: start: 2023
  7. OMEPRAZOLE [Concomitant]
     Active Substance: OMEPRAZOLE
     Dosage: UNK
     Route: 065
  8. ATORVASTATIN [Concomitant]
     Active Substance: ATORVASTATIN
     Dosage: UNK
     Route: 065

REACTIONS (3)
  - Nausea [Recovered/Resolved]
  - Vomiting [Recovered/Resolved]
  - Headache [Recovered/Resolved]

NARRATIVE: CASE EVENT DATE: 20231130
